FAERS Safety Report 9645265 (Version 2)
Quarter: 2013Q4

REPORT INFORMATION
  Report Type: Spontaneous
  Country: US (occurrence: None)
  Receive Date: 20131023
  Receipt Date: 20131030
  Transmission Date: 20140711
  Serious: Yes (Hospitalization)
  Sender: FDA-Public Use
  Company Number: UTC-038969

PATIENT
  Age: 47 Year
  Sex: Female
  Weight: 104.5 kg

DRUGS (3)
  1. REMODULIN [Suspect]
     Indication: PULMONARY FIBROSIS
     Dosage: 20.16 UG/KG (0.014 UG/KG, 1 IN 1 MIN), INTRAVENOUS
     Route: 042
     Dates: start: 20130719
  2. ADCIRCA [Concomitant]
  3. TRACLEER (BOSENTAN) [Concomitant]

REACTIONS (5)
  - Depressed level of consciousness [None]
  - Asthenia [None]
  - Endocarditis [None]
  - Sepsis [None]
  - Drug dose omission [None]
